FAERS Safety Report 6080999-0 (Version None)
Quarter: 2009Q1

REPORT INFORMATION
  Report Type: 
  Country: None (occurrence: None)
  Receive Date: 20090217
  Receipt Date: 20070614
  Transmission Date: 20090719
  Serious: Yes (Other)
  Sender: FDA-Public Use
  Company Number: GB-B.I. PHARMACEUTICALS,INC./RIDGEFIELD-2009-UK-00125UK

PATIENT

DRUGS (1)
  1. VIRAMUNE [Suspect]

REACTIONS (1)
  - HEPATIC CIRRHOSIS [None]
